FAERS Safety Report 18565280 (Version 6)
Quarter: 2022Q3

REPORT INFORMATION
  Report Type: Report from Study
  Country: KR (occurrence: KR)
  Receive Date: 20201201
  Receipt Date: 20220905
  Transmission Date: 20221027
  Serious: Yes (Hospitalization)
  Sender: FDA-Public Use
  Company Number: NVSC2020KR315924

PATIENT
  Age: 76 Year
  Sex: Male
  Weight: 55 kg

DRUGS (38)
  1. CANAKINUMAB [Suspect]
     Active Substance: CANAKINUMAB
     Indication: Non-small cell lung cancer
     Dosage: UNK
     Route: 042
     Dates: start: 20191119, end: 20201104
  2. PEMBROLIZUMAB [Suspect]
     Active Substance: PEMBROLIZUMAB
     Indication: Non-small cell lung cancer
     Dosage: 200 MG, Q3W
     Route: 042
     Dates: start: 20191119, end: 20201104
  3. PACLITAXEL [Suspect]
     Active Substance: PACLITAXEL
     Indication: Non-small cell lung cancer
     Dosage: 340 MG, Q3W
     Route: 042
     Dates: start: 20191119
  4. CRESTOR [Concomitant]
     Active Substance: ROSUVASTATIN CALCIUM
     Indication: Peripheral arterial occlusive disease
     Dosage: UNK
     Route: 065
     Dates: start: 201908
  5. FURTMAN [Concomitant]
     Indication: Prophylaxis
     Dosage: UNK
     Route: 065
     Dates: start: 20191217
  6. FURTMAN [Concomitant]
     Indication: Prophylaxis
     Dosage: 0.2 ML, UNKNOWN
     Route: 065
     Dates: start: 20201124, end: 20201202
  7. CHOLINE ALFOSCERATE [Concomitant]
     Active Substance: CHOLINE ALFOSCERATE
     Indication: Delirium
     Dosage: UNK
     Route: 065
     Dates: start: 20200123
  8. ULTRACET [Concomitant]
     Active Substance: ACETAMINOPHEN\TRAMADOL HYDROCHLORIDE
     Indication: Arthralgia
     Dosage: UNK
     Route: 065
     Dates: start: 20200123
  9. CELEBREX [Concomitant]
     Active Substance: CELECOXIB
     Indication: Arthralgia
     Dosage: UNK
     Route: 065
     Dates: start: 20200317
  10. OXYCODONE HYDROCHLORIDE [Concomitant]
     Active Substance: OXYCODONE HYDROCHLORIDE
     Indication: Arthralgia
     Dosage: UNK
     Route: 065
     Dates: start: 20200317
  11. XARELTO [Concomitant]
     Active Substance: RIVAROXABAN
     Indication: Thrombosis prophylaxis
     Dosage: UNK
     Route: 065
     Dates: start: 20200507, end: 20210421
  12. ASPIRIN [Concomitant]
     Active Substance: ASPIRIN
     Indication: Peripheral arterial occlusive disease
     Dosage: UNK
     Route: 065
     Dates: start: 201908
  13. PERKIN 25-100 [Concomitant]
     Indication: Paraesthesia
     Dosage: UNK
     Route: 065
     Dates: start: 20200513
  14. COUGH SYRUP [Concomitant]
     Active Substance: DEXTROMETHORPHAN HYDROBROMIDE\GUAIFENESIN
     Indication: Productive cough
     Dosage: UNK
     Route: 065
     Dates: start: 20200722
  15. MIRABEGRON [Concomitant]
     Active Substance: MIRABEGRON
     Indication: Benign prostatic hyperplasia
     Dosage: UNK
     Route: 065
     Dates: start: 20200722
  16. TAMS [Concomitant]
     Indication: Benign prostatic hyperplasia
     Dosage: UNK
     Route: 065
     Dates: start: 20200722
  17. ERDOSTEINE [Concomitant]
     Active Substance: ERDOSTEINE
     Indication: Productive cough
     Dosage: UNK
     Route: 065
     Dates: start: 20200915
  18. PREDNISOLONE [Concomitant]
     Active Substance: PREDNISOLONE
     Indication: Diarrhoea
     Dosage: UNK
     Route: 065
     Dates: start: 20201104, end: 20201118
  19. CITOPCIN [Concomitant]
     Indication: Diarrhoea
     Dosage: UNK
     Route: 065
     Dates: start: 20201104, end: 20201118
  20. LAFUTIDINE [Concomitant]
     Active Substance: LAFUTIDINE
     Indication: Prophylaxis
     Dosage: UNK
     Route: 065
     Dates: start: 20201104, end: 20201118
  21. LOPERAMIDE [Concomitant]
     Active Substance: LOPERAMIDE
     Indication: Diarrhoea
     Dosage: UNK
     Route: 065
     Dates: start: 20201015, end: 20201207
  22. NEUSTATIN R [Concomitant]
     Indication: Peripheral arterial occlusive disease
     Dosage: UNK
     Route: 065
     Dates: start: 201908
  23. HARMONILAN [Concomitant]
     Indication: Prophylaxis
     Dosage: UNK
     Route: 065
     Dates: start: 20201104, end: 20201123
  24. DEXTROSE [Concomitant]
     Active Substance: DEXTROSE
     Indication: Diarrhoea
     Dosage: UNK
     Route: 065
     Dates: start: 20201104, end: 20201104
  25. PLAVIX [Concomitant]
     Active Substance: CLOPIDOGREL BISULFATE
     Indication: Peripheral arterial occlusive disease
     Dosage: UNK
     Route: 065
     Dates: start: 201908
  26. LIPILOU [Concomitant]
     Indication: Prophylaxis
     Dosage: UNK
     Route: 065
     Dates: start: 20201124
  27. METRYNAL [Concomitant]
     Indication: Diarrhoea
     Dosage: UNK
     Route: 065
     Dates: start: 20201125, end: 20201127
  28. CEFTRIAXONE [Concomitant]
     Active Substance: CEFTRIAXONE
     Indication: Prophylaxis
     Dosage: UNK
     Route: 065
     Dates: start: 20191217
  29. CEFTRIAXONE [Concomitant]
     Active Substance: CEFTRIAXONE
     Indication: Diarrhoea
     Dosage: 2 G, UNKNOWN
     Route: 065
     Dates: start: 20201124, end: 20201202
  30. COMBIFLEX [Concomitant]
     Indication: Prophylaxis
     Dosage: 1100 ML, UNKNOWN
     Route: 065
     Dates: start: 20201124, end: 20201202
  31. VITAMINS [Concomitant]
     Active Substance: VITAMINS
     Indication: Prophylaxis
     Dosage: 5 ML, UNKNOWN
     Route: 065
     Dates: start: 20201124, end: 20201202
  32. PHYTONADIONE [Concomitant]
     Active Substance: PHYTONADIONE
     Indication: International normalised ratio increased
     Dosage: 10 MG, UNKNOWN
     Route: 065
     Dates: start: 20201124, end: 20201124
  33. XOTERNA [Concomitant]
     Indication: Chronic obstructive pulmonary disease
     Dosage: UNK
     Route: 065
     Dates: start: 20190923
  34. ALBUMIN HUMAN [Concomitant]
     Active Substance: ALBUMIN HUMAN
     Indication: Prophylaxis
     Dosage: UNK
     Route: 065
     Dates: start: 20201124, end: 20201124
  35. URSODIOL [Concomitant]
     Active Substance: URSODIOL
     Indication: Aspartate aminotransferase increased
     Dosage: UNK
     Route: 065
     Dates: start: 20191130
  36. URSODIOL [Concomitant]
     Active Substance: URSODIOL
     Indication: Alanine aminotransferase increased
  37. LYRICA [Concomitant]
     Active Substance: PREGABALIN
     Indication: Paraesthesia
     Dosage: UNK
     Route: 065
     Dates: start: 20191210
  38. CYMBALTA [Concomitant]
     Active Substance: DULOXETINE HYDROCHLORIDE
     Indication: Paraesthesia
     Dosage: UNK
     Route: 065
     Dates: start: 20191210

REACTIONS (1)
  - Immune-mediated enterocolitis [Recovered/Resolved]

NARRATIVE: CASE EVENT DATE: 20201124
